FAERS Safety Report 4795873-7 (Version None)
Quarter: 2005Q4

REPORT INFORMATION
  Report Type: 
  Country: None (occurrence: None)
  Receive Date: 20051012
  Receipt Date: 20050524
  Transmission Date: 20060501
  Serious: Yes (Death, Hospitalization)
  Sender: FDA-Public Use
  Company Number: US-ABBOTT-05P-163-0301319-00

PATIENT
  Sex: Male

DRUGS (5)
  1. RITONAVIR SOFT GELATIN CAPSULES [Suspect]
     Indication: HIV INFECTION
     Route: 048
     Dates: start: 20050318, end: 20050807
  2. TIPRANAVIR [Concomitant]
     Indication: HIV INFECTION
     Route: 048
     Dates: start: 20050317
  3. AMPRENAVIR [Concomitant]
     Indication: HIV INFECTION
     Route: 048
     Dates: start: 20050318
  4. FUZEON [Concomitant]
     Indication: HIV INFECTION
     Route: 058
     Dates: start: 20050318
  5. TRIZAVIR [Concomitant]
     Indication: HIV INFECTION
     Route: 048
     Dates: start: 20050318

REACTIONS (20)
  - BLOOD ALBUMIN DECREASED [None]
  - CALCINOSIS [None]
  - CLOSTRIDIAL INFECTION [None]
  - CORONARY ARTERY DISEASE [None]
  - CULTURE STOOL POSITIVE [None]
  - DIALYSIS [None]
  - DILATATION ATRIAL [None]
  - GENERALISED OEDEMA [None]
  - HERPES SIMPLEX [None]
  - MASTOIDITIS [None]
  - MENINGITIS [None]
  - MYCOBACTERIUM AVIUM COMPLEX INFECTION [None]
  - PANCYTOPENIA [None]
  - PARVOVIRUS INFECTION [None]
  - POST PROCEDURAL COMPLICATION [None]
  - PSEUDOMONAS INFECTION [None]
  - RENAL FAILURE [None]
  - SINUS TACHYCARDIA [None]
  - SINUSITIS [None]
  - SPLENOMEGALY [None]
